FAERS Safety Report 13735988 (Version 1)
Quarter: 2017Q3

REPORT INFORMATION
  Report Type: Spontaneous
  Country: CN (occurrence: CN)
  Receive Date: 20170710
  Receipt Date: 20170710
  Transmission Date: 20171127
  Serious: Yes (Hospitalization, Other)
  Sender: FDA-Public Use
  Company Number: CN-ASTELLAS-2017US026721

PATIENT
  Age: 28 Year
  Sex: Male

DRUGS (13)
  1. DEXTROMETHORPHAN HYDROBROMIDE. [Concomitant]
     Active Substance: DEXTROMETHORPHAN HYDROBROMIDE
     Indication: UPPER RESPIRATORY TRACT INFECTION
     Dosage: UNK UNK, UNKNOWN FREQ.
     Route: 065
  2. PIPERACILLIN [Concomitant]
     Active Substance: PIPERACILLIN
     Indication: PRODUCT USED FOR UNKNOWN INDICATION
     Route: 042
  3. AMBISOME [Suspect]
     Active Substance: AMPHOTERICIN B
     Route: 037
     Dates: start: 20141113
  4. DIAZEPAM. [Concomitant]
     Active Substance: DIAZEPAM
     Indication: PRODUCT USED FOR UNKNOWN INDICATION
     Dosage: UNK UNK, UNKNOWN FREQ.
     Route: 065
  5. AMBISOME [Suspect]
     Active Substance: AMPHOTERICIN B
     Indication: ENCEPHALITIS
     Route: 042
  6. PHENOBARBITAL SODIUM. [Concomitant]
     Active Substance: PHENOBARBITAL SODIUM
     Indication: PRODUCT USED FOR UNKNOWN INDICATION
     Dosage: UNK UNK, UNKNOWN FREQ.
     Route: 065
  7. AMBISOME [Suspect]
     Active Substance: AMPHOTERICIN B
     Indication: CRYPTOCOCCOSIS
     Dosage: 0.1 MG/KG, ONCE DAILY
     Route: 042
     Dates: start: 201405
  8. AMBISOME [Suspect]
     Active Substance: AMPHOTERICIN B
     Route: 037
  9. FLUCYTOSINE. [Concomitant]
     Active Substance: FLUCYTOSINE
     Indication: PRODUCT USED FOR UNKNOWN INDICATION
     Dosage: UNK UNK, UNKNOWN FREQ.
     Route: 048
  10. AMBISOME [Suspect]
     Active Substance: AMPHOTERICIN B
     Route: 042
  11. AMBISOME [Suspect]
     Active Substance: AMPHOTERICIN B
     Dosage: UNK, UNKNOWN FREQ.
     Route: 037
     Dates: start: 20141113
  12. AMBISOME [Suspect]
     Active Substance: AMPHOTERICIN B
     Dosage: 28 MG TOTAL
     Route: 037
  13. FLUCONAZOLE. [Concomitant]
     Active Substance: FLUCONAZOLE
     Indication: PRODUCT USED FOR UNKNOWN INDICATION
     Dosage: UNK UNK, UNKNOWN FREQ.
     Route: 041

REACTIONS (9)
  - Discomfort [Unknown]
  - Facial nerve disorder [Recovered/Resolved]
  - Decreased appetite [Unknown]
  - Pruritus [Unknown]
  - Xanthochromia [Recovered/Resolved]
  - Off label use [Recovered/Resolved]
  - IIIrd nerve disorder [Recovered/Resolved]
  - Somnolence [Unknown]
  - Drug ineffective [Unknown]

NARRATIVE: CASE EVENT DATE: 2014
